FAERS Safety Report 23762613 (Version 1)
Quarter: 2024Q2

REPORT INFORMATION
  Report Type: Spontaneous
  Country: US (occurrence: US)
  Receive Date: 20240419
  Receipt Date: 20240419
  Transmission Date: 20240716
  Serious: Yes (Other)
  Sender: FDA-Public Use
  Company Number: US-ORG100016242-2024000131

PATIENT

DRUGS (2)
  1. EXPAREL [Suspect]
     Active Substance: BUPIVACAINE
     Indication: Transversus abdominis plane block
     Route: 065
  2. MORPHINE [Suspect]
     Active Substance: MORPHINE
     Indication: Pancreaticoduodenectomy
     Dosage: MEDIAN DOSE 200 ?G
     Route: 037

REACTIONS (6)
  - Impaired gastric emptying [Unknown]
  - Lymphatic fistula [Unknown]
  - Pancreatic leak [Unknown]
  - Fluid replacement [Unknown]
  - Post procedural haemorrhage [Unknown]
  - Urinary retention postoperative [Unknown]
